FAERS Safety Report 4952009-7 (Version None)
Quarter: 2006Q1

REPORT INFORMATION
  Report Type: 
  Country: None (occurrence: None)
  Receive Date: 20060320
  Receipt Date: 20060308
  Transmission Date: 20060701
  Serious: Yes (Other)
  Sender: FDA-Public Use
  Company Number: 2006034112

PATIENT
  Sex: Female

DRUGS (3)
  1. XALATAN [Suspect]
     Indication: GLAUCOMA
  2. BRIMONIDINE TARTRATE [Concomitant]
  3. ALL OTHER THERAPEUTIC PRODUCTS [Concomitant]

REACTIONS (1)
  - UVEITIS [None]
